FAERS Safety Report 16793234 (Version 2)
Quarter: 2019Q4

REPORT INFORMATION
  Report Type: Spontaneous
  Country: PT (occurrence: PT)
  Receive Date: 20190911
  Receipt Date: 20191223
  Transmission Date: 20200122
  Serious: Yes (Other)
  Sender: FDA-Public Use
  Company Number: PT-MACLEODS PHARMACEUTICALS US LTD-MAC2019022849

PATIENT

DRUGS (7)
  1. QUETIAPINE. [Suspect]
     Active Substance: QUETIAPINE
     Indication: BIPOLAR DISORDER
     Dosage: 50 MILLIGRAM SLOW RELEASE, QD AT BEDTIME
     Route: 065
     Dates: start: 2018
  2. QUETIAPINE. [Suspect]
     Active Substance: QUETIAPINE
     Dosage: 350 MILLIGRAM, QD
     Route: 065
     Dates: end: 2018
  3. BROMAZEPAM [Concomitant]
     Active Substance: BROMAZEPAM
     Indication: BIPOLAR DISORDER
     Dosage: 3 MILLIGRAM, QD
     Route: 065
  4. LAMOTRIGINE. [Concomitant]
     Active Substance: LAMOTRIGINE
     Indication: PRODUCT USED FOR UNKNOWN INDICATION
     Dosage: 200 MILLIGRAM, QD
     Route: 065
  5. QUETIAPINE. [Suspect]
     Active Substance: QUETIAPINE
     Dosage: 250 MILLIGRAM, QD
     Route: 065
  6. CYAMEMAZINE [Concomitant]
     Active Substance: CYAMEMAZINE
     Indication: PRODUCT USED FOR UNKNOWN INDICATION
     Dosage: UNK
     Route: 065
  7. QUETIAPINE. [Suspect]
     Active Substance: QUETIAPINE
     Dosage: 300 MILLIGRAM, QD AT BEDTIME
     Route: 065

REACTIONS (4)
  - Restlessness [Recovering/Resolving]
  - Emotional distress [Recovering/Resolving]
  - Loss of personal independence in daily activities [Recovering/Resolving]
  - Akathisia [Recovering/Resolving]

NARRATIVE: CASE EVENT DATE: 2018
